FAERS Safety Report 5179579-0 (Version None)
Quarter: 2006Q4

REPORT INFORMATION
  Report Type: 
  Country: None (occurrence: None)
  Receive Date: 20061211
  Receipt Date: 20061129
  Transmission Date: 20070319
  Serious: Yes (Hospitalization)
  Sender: FDA-Public Use
  Company Number: 2006147890

PATIENT
  Age: 43 Year
  Sex: Female

DRUGS (5)
  1. TRIAZOLAM [Suspect]
  2. ALPRAZOLAM [Suspect]
  3. AMOXAPINE [Suspect]
  4. PAROXETINE [Suspect]
  5. RILMAZAFONE (RILMAZAFONE) [Suspect]

REACTIONS (10)
  - APNOEA [None]
  - ELECTROENCEPHALOGRAM ABNORMAL [None]
  - LUNG DISORDER [None]
  - MULTIPLE DRUG OVERDOSE [None]
  - RESPIRATORY RATE INCREASED [None]
  - SINUS TACHYCARDIA [None]
  - STUPOR [None]
  - SUICIDE ATTEMPT [None]
  - TONIC CONVULSION [None]
  - TREMOR [None]
